FAERS Safety Report 7660351-4 (Version None)
Quarter: 2011Q3

REPORT INFORMATION
  Report Type: 
  Country: None (occurrence: None)
  Receive Date: 20110805
  Receipt Date: 20110803
  Transmission Date: 20111222
  Serious: Yes (Hospitalization)
  Sender: FDA-Public Use
  Company Number: GB-AMGEN-GBRCT2011037312

PATIENT
  Age: 42 Year
  Sex: Female

DRUGS (5)
  1. DENOSUMAB [Suspect]
     Indication: BREAST CANCER
     Dates: start: 20110401
  2. AMITRIPTYLINE HCL [Concomitant]
     Dosage: 25 MG, UNK
     Route: 048
     Dates: start: 20110620
  3. LANSOPRAZOLE [Concomitant]
     Dosage: 30 MG, QD
     Route: 048
     Dates: start: 20110401
  4. FLUCONAZOLE [Concomitant]
     Dosage: 100 MG, QD
     Route: 048
     Dates: start: 20110711
  5. DOCETAXEL [Concomitant]

REACTIONS (1)
  - NEUTROPENIA [None]
